FAERS Safety Report 9893340 (Version 1)
Quarter: 2014Q1

REPORT INFORMATION
  Report Type: Report from Study
  Country: CA (occurrence: CA)
  Receive Date: 20140213
  Receipt Date: 20140213
  Transmission Date: 20141002
  Serious: Yes (Other)
  Sender: FDA-Public Use
  Company Number: CA-JNJFOC-20140203699

PATIENT
  Age: 54 Year
  Sex: Male
  Weight: 156.7 kg

DRUGS (3)
  1. REMICADE [Suspect]
     Indication: CROHN^S DISEASE
     Route: 042
     Dates: start: 20130912
  2. COVERSYL [Concomitant]
     Route: 048
     Dates: end: 20140125
  3. MELOXICAM [Concomitant]
     Route: 048

REACTIONS (2)
  - Carpal tunnel syndrome [Not Recovered/Not Resolved]
  - Oedema peripheral [Not Recovered/Not Resolved]
